FAERS Safety Report 13122015 (Version 2)
Quarter: 2022Q1

REPORT INFORMATION
  Report Type: Spontaneous
  Country: US (occurrence: US)
  Receive Date: 20170117
  Receipt Date: 20220301
  Transmission Date: 20220423
  Serious: No
  Sender: FDA-Public Use
  Company Number: US-MYLANLABS-2016M1055867

PATIENT
  Sex: Female

DRUGS (1)
  1. ESTRADIOL TRANSDERMAL SYSTEM [Suspect]
     Active Substance: ESTRADIOL
     Indication: Menopause
     Dosage: 0.1 MG, QD, CHANGE (TWICE-WEEKLY)
     Route: 062
     Dates: start: 2016

REACTIONS (4)
  - Application site rash [Unknown]
  - Application site erythema [Unknown]
  - Pruritus [Unknown]
  - Product adhesion issue [Unknown]
